FAERS Safety Report 9198743 (Version 1)
Quarter: 2013Q1

REPORT INFORMATION
  Report Type: Report from Study
  Country: CA (occurrence: CA)
  Receive Date: 20130329
  Receipt Date: 20130329
  Transmission Date: 20140127
  Serious: Yes (Other)
  Sender: FDA-Public Use
  Company Number: CA-JNJFOC-20130316442

PATIENT
  Sex: Female
  Weight: 70.55 kg

DRUGS (7)
  1. REMICADE [Suspect]
     Indication: CROHN^S DISEASE
     Route: 042
  2. CRESTOR [Concomitant]
     Route: 065
  3. MELOXICAM [Concomitant]
     Route: 065
  4. PREMARIN [Concomitant]
     Route: 065
  5. PREDNISONE [Concomitant]
  6. IMURAN [Concomitant]
     Route: 065
  7. TRAMACET [Concomitant]
     Route: 065

REACTIONS (5)
  - Anal fissure [Unknown]
  - Diarrhoea [Unknown]
  - Dyspnoea [Recovered/Resolved]
  - Nausea [Recovered/Resolved]
  - Asthenia [Recovered/Resolved]
